FAERS Safety Report 18000308 (Version 2)
Quarter: 2020Q3

REPORT INFORMATION
  Report Type: Spontaneous
  Country: US (occurrence: US)
  Receive Date: 20200709
  Receipt Date: 20200827
  Transmission Date: 20201103
  Serious: Yes (Hospitalization, Other)
  Sender: FDA-Public Use
  Company Number: US-AMNEAL PHARMACEUTICALS-2020-AMRX-01917

PATIENT
  Age: 16 Year
  Sex: Male

DRUGS (4)
  1. ISOTRETINOIN. [Suspect]
     Active Substance: ISOTRETINOIN
     Dosage: 30 MILLIGRAM, DAILY FOR 2 WEEKS
     Route: 065
     Dates: start: 2020, end: 20200629
  2. ISOTRETINOIN. [Suspect]
     Active Substance: ISOTRETINOIN
     Dosage: 30 MILLIGRAM, 2 /DAY FOR 1.5 MONTHS
     Route: 065
     Dates: start: 2020, end: 2020
  3. ISOTRETINOIN. [Suspect]
     Active Substance: ISOTRETINOIN
     Indication: PRODUCT USED FOR UNKNOWN INDICATION
     Dosage: 20 MILLIGRAM, 2 /DAY FOR 2 MONTHS
     Route: 065
     Dates: start: 20200215, end: 2020
  4. TYLENOL [Concomitant]
     Active Substance: ACETAMINOPHEN
     Indication: PRODUCT USED FOR UNKNOWN INDICATION
     Dosage: UNK
     Route: 065
     Dates: start: 202006, end: 2020

REACTIONS (4)
  - Liver function test increased [Recovered/Resolved]
  - Bacterial infection [Unknown]
  - Haematochezia [Unknown]
  - Shoulder operation [Unknown]

NARRATIVE: CASE EVENT DATE: 20200605
